APPROVED DRUG PRODUCT: ORUDIS KT
Active Ingredient: KETOPROFEN
Strength: 12.5MG **Federal Register determination that product was not discontinued or withdrawn for safety or effectiveness reasons**
Dosage Form/Route: TABLET;ORAL
Application: N020429 | Product #001
Applicant: WYETH CONSUMER HEALTHCARE
Approved: Oct 6, 1995 | RLD: Yes | RS: No | Type: DISCN